FAERS Safety Report 10330653 (Version 1)
Quarter: 2014Q3

REPORT INFORMATION
  Report Type: Spontaneous
  Country: US (occurrence: US)
  Receive Date: 20140722
  Receipt Date: 20140722
  Transmission Date: 20150326
  Serious: Yes (Other)
  Sender: FDA-Public Use
  Company Number: PHHY2014US085884

PATIENT
  Age: 61 Year
  Sex: Female

DRUGS (1)
  1. LETROZOLE. [Suspect]
     Active Substance: LETROZOLE
     Indication: BREAST CANCER

REACTIONS (9)
  - Systemic sclerosis [Unknown]
  - Raynaud^s phenomenon [Unknown]
  - Musculoskeletal stiffness [Unknown]
  - Arthralgia [Recovering/Resolving]
  - Skin discolouration [Unknown]
  - Synovitis [Unknown]
  - Skin induration [Recovering/Resolving]
  - Erythema [Recovered/Resolved]
  - Vasospasm [Recovering/Resolving]
